FAERS Safety Report 6315132-0 (Version None)
Quarter: 2009Q3

REPORT INFORMATION
  Report Type: 
  Country: None (occurrence: None)
  Receive Date: 20090818
  Receipt Date: 20090818
  Transmission Date: 20100115
  Serious: No
  Sender: FDA-Public Use
  Company Number: None

PATIENT

DRUGS (1)
  1. ZOFRAN ODT [Suspect]
     Dosage: 8 MILLIGRAMS
     Dates: start: 20080401

REACTIONS (5)
  - DRUG EFFECT DECREASED [None]
  - IMPAIRED GASTRIC EMPTYING [None]
  - PRODUCT MEASURED POTENCY ISSUE [None]
  - PRODUCT SOLUBILITY ABNORMAL [None]
  - VISUAL ACUITY REDUCED [None]
